FAERS Safety Report 5493907-8 (Version None)
Quarter: 2007Q4

REPORT INFORMATION
  Report Type: 
  Country: None (occurrence: None)
  Receive Date: 20071019
  Receipt Date: 20071003
  Transmission Date: 20080405
  Serious: Yes (Hospitalization)
  Sender: FDA-Public Use
  Company Number: 2007BI019872

PATIENT
  Age: 75 Year
  Sex: Female

DRUGS (16)
  1. AVONEX [Suspect]
     Indication: MULTIPLE SCLEROSIS
     Dosage: 30 UG;QW;IM
     Route: 030
     Dates: start: 19991001
  2. AVONEX [Suspect]
     Indication: MULTIPLE SCLEROSIS
     Dosage: 30 UG;QW;IM
     Route: 030
     Dates: end: 20070827
  3. MS CONTIN [Concomitant]
  4. OMEPRAZOLE [Concomitant]
  5. ZOLOFT [Concomitant]
  6. BISOPROLOL FUMARATE [Concomitant]
  7. SUCRALFATE [Concomitant]
  8. REMERON [Concomitant]
  9. REQUIP [Concomitant]
  10. CALCIUM WITH D [Concomitant]
  11. BACLOFEN [Concomitant]
  12. BUMEX [Concomitant]
  13. POTASSIUM CHLORIDE [Concomitant]
  14. VALSARTIN [Concomitant]
  15. COMBIVENT [Concomitant]
  16. SPIRONOLACTONE [Concomitant]

REACTIONS (13)
  - ANXIETY [None]
  - ASTHENIA [None]
  - ATROPHIC VULVOVAGINITIS [None]
  - CELLULITIS [None]
  - COLITIS [None]
  - CONSTIPATION [None]
  - DEHYDRATION [None]
  - HAEMOGLOBIN DECREASED [None]
  - HYPOKALAEMIA [None]
  - ILEUS PARALYTIC [None]
  - IRON DEFICIENCY ANAEMIA [None]
  - PETECHIAE [None]
  - VASCULITIS [None]
